FAERS Safety Report 11718841 (Version 1)
Quarter: 2015Q4

REPORT INFORMATION
  Report Type: Spontaneous
  Country: US (occurrence: None)
  Receive Date: 20151109
  Receipt Date: 20151109
  Transmission Date: 20160304
  Serious: Yes (Other)
  Sender: FDA-Public Use
  Company Number: None

PATIENT
  Age: 48 Year
  Sex: Female
  Weight: 97.07 kg

DRUGS (2)
  1. CONTRAVE [Suspect]
     Active Substance: BUPROPION HYDROCHLORIDE\NALTREXONE HYDROCHLORIDE
     Indication: WEIGHT
     Dosage: 1 PILL TWICE DAILY
     Route: 048
     Dates: start: 20151030, end: 20151102
  2. EVAMIST [Concomitant]
     Active Substance: ESTRADIOL

REACTIONS (6)
  - Headache [None]
  - Vomiting [None]
  - Fatigue [None]
  - Nausea [None]
  - Mood swings [None]
  - Crying [None]

NARRATIVE: CASE EVENT DATE: 20151030
